FAERS Safety Report 21005625 (Version 1)
Quarter: 2022Q2

REPORT INFORMATION
  Report Type: Spontaneous
  Country: JP (occurrence: JP)
  Receive Date: 20220624
  Receipt Date: 20220624
  Transmission Date: 20220720
  Serious: Yes (Life-Threatening, Other)
  Sender: FDA-Public Use
  Company Number: JP-PFIZER INC-PV202200002272

PATIENT
  Age: 53 Year
  Sex: Female

DRUGS (5)
  1. RITUXIMAB [Suspect]
     Active Substance: RITUXIMAB
     Dosage: SIX COURSES
  2. CYCLOPHOSPHAMIDE [Suspect]
     Active Substance: CYCLOPHOSPHAMIDE
     Indication: Pleural effusion
     Dosage: SIX COURSES
  3. VINCRISTINE [Suspect]
     Active Substance: VINCRISTINE
     Indication: Pleural effusion
     Dosage: SIX COURSES
  4. PREDNISOLONE [Suspect]
     Active Substance: PREDNISOLONE
     Indication: Pleural effusion
     Dosage: SIX COURSES
  5. DOXORUBICIN [Suspect]
     Active Substance: DOXORUBICIN
     Indication: Pleural effusion
     Dosage: SIX COURSES

REACTIONS (1)
  - Bing-Neel syndrome [Recovering/Resolving]
